FAERS Safety Report 15783619 (Version 2)
Quarter: 2019Q1

REPORT INFORMATION
  Report Type: Spontaneous
  Country: IT (occurrence: IT)
  Receive Date: 20190102
  Receipt Date: 20190121
  Transmission Date: 20190417
  Serious: Yes (Hospitalization)
  Sender: FDA-Public Use
  Company Number: IT-EAGLE PHARMACEUTICALS, INC.-IT-2018EAG000101

PATIENT

DRUGS (6)
  1. CISPLATIN. [Suspect]
     Active Substance: CISPLATIN
     Indication: PENILE SQUAMOUS CELL CARCINOMA
     Dosage: UNK
     Route: 065
     Dates: start: 201506, end: 201509
  2. CAPECITABINE. [Suspect]
     Active Substance: CAPECITABINE
     Indication: PENILE SQUAMOUS CELL CARCINOMA
     Dosage: UNK
     Route: 065
     Dates: end: 201607
  3. RADIOTHERAPY [Suspect]
     Active Substance: RADIATION THERAPY
     Indication: PENILE SQUAMOUS CELL CARCINOMA
     Dosage: UNK
     Route: 065
     Dates: start: 201506, end: 201509
  4. DOCETAXEL. [Suspect]
     Active Substance: DOCETAXEL
     Dosage: TWO ONCE-WEEKLY CYCLES,UNK
     Route: 065
     Dates: start: 201611
  5. FLUOROURACIL. [Suspect]
     Active Substance: FLUOROURACIL
     Indication: PENILE SQUAMOUS CELL CARCINOMA
     Dosage: UNK
     Route: 065
     Dates: start: 201506, end: 201509
  6. DOCETAXEL. [Suspect]
     Active Substance: DOCETAXEL
     Indication: PENILE SQUAMOUS CELL CARCINOMA
     Dosage: UNK
     Route: 065
     Dates: end: 201607

REACTIONS (1)
  - Atypical haemolytic uraemic syndrome [Recovered/Resolved with Sequelae]
